FAERS Safety Report 7685205 (Version 2)
Quarter: 2013Q1

REPORT INFORMATION
  Report Type: Spontaneous
  Country: FR (occurrence: FR)
  Receive Date: 20101129
  Receipt Date: 20130320
  Transmission Date: 20140127
  Serious: Yes (Hospitalization)
  Sender: FDA-Public Use
  Company Number: FR-JNJFOC-20101108268

PATIENT
  Age: 34 Year
  Sex: Male

DRUGS (9)
  1. TOPALGIC [Suspect]
     Indication: ERYSIPELAS
     Route: 048
     Dates: start: 20100829, end: 20100908
  2. TOPALGIC [Suspect]
     Indication: ERYSIPELAS
     Route: 048
  3. LOVENOX [Suspect]
     Indication: ERYSIPELAS
     Route: 058
  4. LOVENOX [Suspect]
     Indication: ERYSIPELAS
     Route: 058
     Dates: start: 20100829, end: 20100908
  5. PENICILLIN G SODIUM [Suspect]
     Indication: ERYSIPELAS
     Dosage: 20X10^6 IU
     Route: 042
     Dates: start: 20100829, end: 20100901
  6. DAFALGAN [Suspect]
     Indication: ERYSIPELAS
     Route: 048
  7. DAFALGAN [Suspect]
     Indication: ERYSIPELAS
     Route: 048
     Dates: start: 20100829, end: 20100908
  8. TAZOCILLINE [Suspect]
     Indication: JOINT ABSCESS
     Route: 042
     Dates: start: 20100901, end: 20100903
  9. GENTAMICIN [Suspect]
     Indication: JOINT ABSCESS
     Route: 042
     Dates: start: 20100901, end: 20100903

REACTIONS (6)
  - Dermatitis bullous [Recovered/Resolved]
  - Eosinophilia [Recovered/Resolved]
  - Oedema peripheral [Recovered/Resolved]
  - Rash maculo-papular [Recovered/Resolved]
  - Eyelid oedema [Recovered/Resolved]
  - Face oedema [Recovered/Resolved]
